FAERS Safety Report 17924865 (Version 1)
Quarter: 2020Q2

REPORT INFORMATION
  Report Type: Spontaneous
  Country: IT (occurrence: IT)
  Receive Date: 20200622
  Receipt Date: 20200622
  Transmission Date: 20200714
  Serious: Yes (Other)
  Sender: FDA-Public Use
  Company Number: NVSC2020IT090930

PATIENT
  Age: 82 Year
  Sex: Male

DRUGS (6)
  1. FLUOROURACIL. [Suspect]
     Active Substance: FLUOROURACIL
     Indication: OESOPHAGEAL ADENOCARCINOMA
     Dosage: MODIFIED DOSE
     Route: 065
     Dates: start: 201512, end: 201605
  2. PACLITAXEL. [Suspect]
     Active Substance: PACLITAXEL
     Indication: OESOPHAGEAL ADENOCARCINOMA
     Dosage: 80MG/MQ D1,8,5 ADMINISTERED IN A 28 DAYS CYCLE)
     Route: 065
     Dates: start: 201607
  3. OXALIPLATIN. [Suspect]
     Active Substance: OXALIPLATIN
     Indication: OESOPHAGEAL ADENOCARCINOMA
     Dosage: MODIFIED DOSE
     Route: 065
     Dates: start: 201512, end: 201605
  4. NIVOLUMAB [Suspect]
     Active Substance: NIVOLUMAB
     Indication: OESOPHAGEAL ADENOCARCINOMA
     Dosage: UNK
     Route: 065
     Dates: start: 20171016
  5. RAMUCIRUMAB [Suspect]
     Active Substance: RAMUCIRUMAB
     Indication: OESOPHAGEAL ADENOCARCINOMA
     Dosage: 80 MG/KG (D1,15) ADMINISTERED IN A 28 DAYS CYCLE)
     Route: 065
     Dates: start: 201607
  6. FOLINIC ACID [Suspect]
     Active Substance: LEUCOVORIN
     Indication: PRODUCT USED FOR UNKNOWN INDICATION
     Dosage: MODIFIED DOSE
     Route: 065
     Dates: start: 201512, end: 201605

REACTIONS (8)
  - Metastases to liver [Unknown]
  - Therapy partial responder [Unknown]
  - Haematotoxicity [Unknown]
  - Weight decreased [Unknown]
  - Product use in unapproved indication [Unknown]
  - Abdominal pain [Unknown]
  - Oesophageal adenocarcinoma [Unknown]
  - Off label use [Unknown]

NARRATIVE: CASE EVENT DATE: 201703
